FAERS Safety Report 7015466-0 (Version None)
Quarter: 2010Q3

REPORT INFORMATION
  Report Type: 
  Country: None (occurrence: None)
  Receive Date: 20100927
  Receipt Date: 20100912
  Transmission Date: 20110219
  Serious: No
  Sender: FDA-Public Use
  Company Number: US-B.I. PHARMACEUTICALS,INC./RIDGEFIELD-2010-BP-10575BP

PATIENT
  Sex: Female

DRUGS (3)
  1. MIRAPEX [Suspect]
     Indication: RESTLESS LEGS SYNDROME
  2. CYMBALTA [Concomitant]
     Indication: FIBROMYALGIA
  3. KLONOPIN [Concomitant]
     Indication: ANXIETY

REACTIONS (2)
  - COMPULSIVE SHOPPING [None]
  - OBSESSIVE-COMPULSIVE DISORDER [None]
